FAERS Safety Report 15880505 (Version 1)
Quarter: 2019Q1

REPORT INFORMATION
  Report Type: Spontaneous
  Country: US (occurrence: US)
  Receive Date: 20190128
  Receipt Date: 20190128
  Transmission Date: 20190417
  Serious: Yes (Hospitalization)
  Sender: FDA-Public Use
  Company Number: None

PATIENT
  Sex: Male

DRUGS (4)
  1. METHOTREXATE. [Suspect]
     Active Substance: METHOTREXATE
     Indication: PSORIATIC ARTHROPATHY
     Dates: start: 20160419
  2. FOLIC ACID 800MCG [Concomitant]
  3. TESTOST CYP 200MG/ML [Concomitant]
  4. OMEGA POWER CAP 1050MG [Concomitant]

REACTIONS (2)
  - Meningitis [None]
  - Lyme disease [None]
